FAERS Safety Report 12706169 (Version 2)
Quarter: 2016Q3

REPORT INFORMATION
  Report Type: Spontaneous
  Country: US (occurrence: US)
  Receive Date: 20160901
  Receipt Date: 20160901
  Transmission Date: 20161109
  Serious: No
  Sender: FDA-Public Use
  Company Number: US-JAZZ-2016-US-008118

PATIENT
  Sex: Female

DRUGS (37)
  1. NABUMETONE. [Concomitant]
     Active Substance: NABUMETONE
  2. LAMOTRIGINE. [Concomitant]
     Active Substance: LAMOTRIGINE
  3. XYREM [Suspect]
     Active Substance: SODIUM OXYBATE
     Indication: SLEEP DISORDER
     Dosage: 2.25 G, BID
     Route: 048
     Dates: start: 201312, end: 201404
  4. FLECTOR [Concomitant]
     Active Substance: DICLOFENAC EPOLAMINE
  5. RESTASIS [Concomitant]
     Active Substance: CYCLOSPORINE
  6. DESONIDE. [Concomitant]
     Active Substance: DESONIDE
  7. ZOFRAN [Concomitant]
     Active Substance: ONDANSETRON HYDROCHLORIDE
  8. XYREM [Suspect]
     Active Substance: SODIUM OXYBATE
     Dosage: DOSE ADJUSTMENTS
     Route: 048
  9. PREVACID [Concomitant]
     Active Substance: LANSOPRAZOLE
  10. PROLIA [Concomitant]
     Active Substance: DENOSUMAB
  11. GABAPENTIN. [Concomitant]
     Active Substance: GABAPENTIN
  12. CYTOMEL [Concomitant]
     Active Substance: LIOTHYRONINE SODIUM
  13. XYREM [Suspect]
     Active Substance: SODIUM OXYBATE
     Dosage: 2 G, BID
     Route: 048
     Dates: start: 201604
  14. PROPRANOLOL [Concomitant]
     Active Substance: PROPRANOLOL\PROPRANOLOL HYDROCHLORIDE
  15. PHENOBARBITAL. [Concomitant]
     Active Substance: PHENOBARBITAL
  16. SYNTHROID [Concomitant]
     Active Substance: LEVOTHYROXINE SODIUM
  17. AZASITE [Concomitant]
     Active Substance: AZITHROMYCIN MONOHYDRATE
  18. FLONASE [Concomitant]
     Active Substance: FLUTICASONE PROPIONATE
  19. CHLORAL HYDRATE [Concomitant]
     Active Substance: CHLORAL HYDRATE
  20. FOLATE [Concomitant]
     Active Substance: FOLATE SODIUM
  21. PROAIR HFA [Concomitant]
     Active Substance: ALBUTEROL SULFATE
  22. FAMOTIDINE. [Concomitant]
     Active Substance: FAMOTIDINE
  23. NORVASC [Concomitant]
     Active Substance: AMLODIPINE BESYLATE
  24. ULTRAM [Concomitant]
     Active Substance: TRAMADOL HYDROCHLORIDE
  25. CALCIUM [Concomitant]
     Active Substance: CALCIUM
  26. CODEINE SULFATE. [Concomitant]
     Active Substance: CODEINE SULFATE
  27. LIOTHYRONINE SODIUM. [Concomitant]
     Active Substance: LIOTHYRONINE SODIUM
  28. ORPHENADRINE [Concomitant]
     Active Substance: ORPHENADRINE
  29. VITAMIN D [Concomitant]
     Active Substance: CHOLECALCIFEROL
  30. ADVAIR HFA [Concomitant]
     Active Substance: FLUTICASONE PROPIONATE\SALMETEROL XINAFOATE
  31. LIPITOR [Concomitant]
     Active Substance: ATORVASTATIN CALCIUM
  32. HUMIRA [Concomitant]
     Active Substance: ADALIMUMAB
  33. FLUCONAZOLE. [Concomitant]
     Active Substance: FLUCONAZOLE
  34. AZITHROMYCIN ANHYDROUS. [Concomitant]
     Active Substance: AZITHROMYCIN ANHYDROUS
  35. LIDOCAINE. [Concomitant]
     Active Substance: LIDOCAINE
  36. OMEGA 3 FISH OIL [Concomitant]
     Active Substance: FISH OIL\OMEGA-3 FATTY ACIDS
  37. VOLTAREN [Concomitant]
     Active Substance: DICLOFENAC SODIUM

REACTIONS (1)
  - Sedation [Unknown]

NARRATIVE: CASE EVENT DATE: 2016
